FAERS Safety Report 21646646 (Version 1)
Quarter: 2022Q4

REPORT INFORMATION
  Report Type: Spontaneous
  Country: US (occurrence: US)
  Receive Date: 20221127
  Receipt Date: 20221127
  Transmission Date: 20230112
  Serious: No
  Sender: FDA-Public Use
  Company Number: US-BoehringerIngelheim-2022-BI-204839

PATIENT
  Sex: Female

DRUGS (2)
  1. JARDIANCE [Suspect]
     Active Substance: EMPAGLIFLOZIN
     Indication: Product used for unknown indication
  2. TANZEUM [Suspect]
     Active Substance: ALBIGLUTIDE
     Indication: Product used for unknown indication

REACTIONS (2)
  - Fungal infection [Unknown]
  - Diarrhoea [Unknown]
